FAERS Safety Report 22024496 (Version 1)
Quarter: 2023Q1

REPORT INFORMATION
  Report Type: Spontaneous
  Country: US (occurrence: None)
  Receive Date: 20230223
  Receipt Date: 20230223
  Transmission Date: 20230417
  Serious: No
  Sender: FDA-Public Use
  Company Number: US-ROCHE-3049508

PATIENT
  Sex: Female

DRUGS (7)
  1. XOLAIR [Suspect]
     Active Substance: OMALIZUMAB
     Indication: Idiopathic urticaria
     Dosage: STRENGTH 150MG/ML
     Route: 058
     Dates: start: 20210720
  2. XOLAIR [Suspect]
     Active Substance: OMALIZUMAB
  3. XOLAIR [Suspect]
     Active Substance: OMALIZUMAB
     Dosage: STRENGTH 150MG/ML
     Route: 058
     Dates: start: 202201
  4. XOLAIR [Suspect]
     Active Substance: OMALIZUMAB
  5. PLAQUENIL [Concomitant]
     Active Substance: HYDROXYCHLOROQUINE SULFATE
  6. AMLODIPINE [Concomitant]
     Active Substance: AMLODIPINE BESYLATE
  7. HYDROCHLOROTHIAZIDE [Concomitant]
     Active Substance: HYDROCHLOROTHIAZIDE

REACTIONS (8)
  - Headache [Unknown]
  - Arthralgia [Unknown]
  - Alopecia [Unknown]
  - Muscle spasms [Unknown]
  - Pruritus [Unknown]
  - Sensory disturbance [Unknown]
  - Bronchitis [Unknown]
  - Off label use [Unknown]
